FAERS Safety Report 21540141 (Version 1)
Quarter: 2022Q4

REPORT INFORMATION
  Report Type: Spontaneous
  Country: CN (occurrence: None)
  Receive Date: 20221102
  Receipt Date: 20221102
  Transmission Date: 20230113
  Serious: Yes (Other)
  Sender: FDA-Public Use
  Company Number: CN-ROCHE-3210093

PATIENT
  Sex: Male
  Weight: 63 kg

DRUGS (10)
  1. XELODA [Suspect]
     Active Substance: CAPECITABINE
     Indication: Colorectal cancer
     Route: 065
     Dates: start: 202110
  2. XELODA [Suspect]
     Active Substance: CAPECITABINE
     Dosage: ON AN UNSPECIFIED DATE, THE PATIENT TOOK CAPECITABINE TABLETS AT A REDUCED DOSE.
     Route: 065
  3. XELODA [Suspect]
     Active Substance: CAPECITABINE
     Dosage: 1G IN THE MORNING, 1.5G IN THE EVENING D1-D14 THREE WEEKS A CYCLE
     Route: 048
     Dates: start: 20221001
  4. IRINOTECAN HYDROCHLORIDE [Suspect]
     Active Substance: IRINOTECAN HYDROCHLORIDE
     Indication: Colorectal cancer
     Route: 041
     Dates: start: 20221015
  5. CETUXIMAB [Concomitant]
     Active Substance: CETUXIMAB
     Indication: Colorectal cancer
     Dates: start: 202110
  6. CETUXIMAB [Concomitant]
     Active Substance: CETUXIMAB
     Dosage: 800MG D1 TWO WEEKS A CYCLE
     Dates: start: 20221001
  7. CETUXIMAB [Concomitant]
     Active Substance: CETUXIMAB
     Dosage: 800MG D1
     Dates: start: 20221015
  8. FLUOROURACIL [Concomitant]
     Active Substance: FLUOROURACIL
     Indication: Colorectal cancer
     Dosage: 0.5G D1
     Route: 041
     Dates: start: 20221015
  9. FLUOROURACIL [Concomitant]
     Active Substance: FLUOROURACIL
     Dosage: 3.5G INTRAVENOUS PUMP INJECTION 46H
     Dates: start: 20221015
  10. LEUCOVORIN CALCIUM [Concomitant]
     Active Substance: LEUCOVORIN CALCIUM
     Indication: Colorectal cancer
     Dosage: 650MG D1
     Route: 041
     Dates: start: 20221015

REACTIONS (3)
  - Drug eruption [Recovering/Resolving]
  - Palmar-plantar erythrodysaesthesia syndrome [Unknown]
  - Rash [Unknown]

NARRATIVE: CASE EVENT DATE: 20221014
